FAERS Safety Report 11441631 (Version 2)
Quarter: 2015Q3

REPORT INFORMATION
  Report Type: Spontaneous
  Country: US (occurrence: US)
  Receive Date: 20150901
  Receipt Date: 20150915
  Transmission Date: 20151125
  Serious: No
  Sender: FDA-Public Use
  Company Number: US-BIOGENIDEC-2015BI118799

PATIENT
  Sex: Female

DRUGS (1)
  1. TYSABRI [Suspect]
     Active Substance: NATALIZUMAB
     Indication: MULTIPLE SCLEROSIS
     Route: 042
     Dates: start: 20130221

REACTIONS (10)
  - Visual impairment [Not Recovered/Not Resolved]
  - Heart rate increased [Recovered/Resolved]
  - Paraesthesia [Recovered/Resolved]
  - Pain [Recovered/Resolved]
  - Burning sensation [Recovered/Resolved]
  - Vision blurred [Not Recovered/Not Resolved]
  - Poor venous access [Recovered/Resolved]
  - Venous injury [Unknown]
  - Incorrect drug administration rate [Recovered/Resolved]
  - Feeling hot [Recovered/Resolved]

NARRATIVE: CASE EVENT DATE: 2014
